FAERS Safety Report 6566741-5 (Version None)
Quarter: 2010Q1

REPORT INFORMATION
  Report Type: 
  Country: None (occurrence: None)
  Receive Date: 20100202
  Receipt Date: 20100122
  Transmission Date: 20100710
  Serious: Yes (Hospitalization, Other)
  Sender: FDA-Public Use
  Company Number: BE-JNJFOC-20091100795

PATIENT
  Sex: Male
  Weight: 82 kg

DRUGS (8)
  1. REMICADE [Suspect]
     Indication: COLITIS ULCERATIVE
     Route: 042
  2. REMICADE [Suspect]
     Route: 042
  3. PENTASA [Concomitant]
     Indication: COLITIS ULCERATIVE
     Route: 048
  4. MEDROL [Concomitant]
     Indication: COLITIS ULCERATIVE
     Route: 048
  5. MEDROL [Concomitant]
     Route: 048
  6. MEDROL [Concomitant]
     Route: 048
  7. CLEXANE [Concomitant]
     Indication: THROMBOSIS PROPHYLAXIS
     Route: 058
  8. DIPIDOLOR [Concomitant]
     Indication: COLITIS ULCERATIVE
     Route: 042

REACTIONS (8)
  - CANDIDA SEPSIS [None]
  - CLOSTRIDIUM DIFFICILE COLITIS [None]
  - COLITIS ULCERATIVE [None]
  - DEVICE RELATED INFECTION [None]
  - DRUG INEFFECTIVE [None]
  - EYE INFECTION FUNGAL [None]
  - PNEUMONIA BACTERIAL [None]
  - PNEUMONIA ESCHERICHIA [None]
